FAERS Safety Report 16638523 (Version 2)
Quarter: 2019Q3

REPORT INFORMATION
  Report Type: Spontaneous
  Country: US (occurrence: US)
  Receive Date: 20190726
  Receipt Date: 20190913
  Transmission Date: 20191004
  Serious: Yes (Life-Threatening, Hospitalization, Other)
  Sender: FDA-Public Use
  Company Number: US-PURDUE PHARMA-GBR-2019-0068565

PATIENT
  Age: 76 Year
  Sex: Female

DRUGS (2)
  1. MORPHINE SULFATE. [Suspect]
     Active Substance: MORPHINE SULFATE
     Indication: NECK PAIN
     Dosage: 30 MG, BID
     Route: 048
     Dates: start: 20180724, end: 2018
  2. MORPHINE SULFATE. [Suspect]
     Active Substance: MORPHINE SULFATE
     Indication: ANALGESIC THERAPY

REACTIONS (8)
  - Bradypnoea [Recovered/Resolved]
  - Miosis [Recovered/Resolved]
  - Toxicity to various agents [Recovered/Resolved]
  - Muscle twitching [Recovered/Resolved]
  - Depressed level of consciousness [Recovered/Resolved]
  - Dysarthria [Recovered/Resolved]
  - Choking [Recovered/Resolved]
  - Mental status changes [Recovered/Resolved]

NARRATIVE: CASE EVENT DATE: 20180724
